FAERS Safety Report 11934084 (Version 2)
Quarter: 2016Q1

REPORT INFORMATION
  Report Type: Spontaneous
  Country: US (occurrence: US)
  Receive Date: 20160121
  Receipt Date: 20160122
  Transmission Date: 20160526
  Serious: Yes (Death, Other)
  Sender: FDA-Public Use
  Company Number: US-ASTELLAS-2015US032965

PATIENT
  Age: 82 Year
  Sex: Male

DRUGS (2)
  1. HYDROMORPHONE [Concomitant]
     Active Substance: HYDROMORPHONE
     Indication: PRODUCT USED FOR UNKNOWN INDICATION
     Dosage: UNK UNK, UNKNOWN FREQ.
     Route: 065
  2. XTANDI [Suspect]
     Active Substance: ENZALUTAMIDE
     Indication: PROSTATE CANCER
     Route: 048
     Dates: start: 20151001, end: 201512

REACTIONS (14)
  - Hypoacusis [Unknown]
  - Arthralgia [Unknown]
  - Malaise [Unknown]
  - Cold sweat [Unknown]
  - Somnolence [Unknown]
  - Bone pain [Unknown]
  - Constipation [Unknown]
  - Weight decreased [Unknown]
  - Pain [Unknown]
  - Feeling abnormal [Unknown]
  - Insomnia [Unknown]
  - Pain in extremity [Unknown]
  - Death [Fatal]
  - Decreased appetite [Unknown]

NARRATIVE: CASE EVENT DATE: 201512
